FAERS Safety Report 5846230-3 (Version None)
Quarter: 2008Q3

REPORT INFORMATION
  Report Type: 
  Country: None (occurrence: None)
  Receive Date: 20080813
  Receipt Date: 20080730
  Transmission Date: 20090109
  Serious: Yes (Death)
  Sender: FDA-Public Use
  Company Number: 2008064161

PATIENT
  Age: 62 Year
  Sex: Female

DRUGS (5)
  1. DALTEPARIN SODIUM [Suspect]
     Indication: LUNG NEOPLASM MALIGNANT
     Dates: start: 20080407, end: 20080729
  2. CEPHALEXIN [Concomitant]
  3. MORPHINE SULFATE [Concomitant]
  4. MOVICOL (MACROGOL, POTASSIUM CHLORIDE, SODIUM BICARBONATE, SODIUM CHLO [Concomitant]
  5. ACETYLSALICYLIC ACID SRT [Concomitant]

REACTIONS (1)
  - HAEMOPTYSIS [None]
